FAERS Safety Report 10075902 (Version 1)
Quarter: 2014Q2

REPORT INFORMATION
  Report Type: Spontaneous
  Country: ES (occurrence: ES)
  Receive Date: 20140414
  Receipt Date: 20140414
  Transmission Date: 20141212
  Serious: Yes (Other)
  Sender: FDA-Public Use
  Company Number: ES-CELGENEUS-144-21880-14035448

PATIENT
  Age: 76 Year
  Sex: Male

DRUGS (6)
  1. REVLIMID [Suspect]
     Indication: PLASMA CELL MYELOMA
     Route: 048
     Dates: start: 20140310
  2. DEXAMETHASONE [Suspect]
     Indication: PLASMA CELL MYELOMA
     Dosage: 20 MILLIGRAM
     Route: 065
     Dates: start: 20140310, end: 20140318
  3. DEXAMETHASONE [Suspect]
     Route: 065
     Dates: start: 20140318, end: 20140324
  4. ZOMETA [Concomitant]
     Indication: PRODUCT USED FOR UNKNOWN INDICATION
     Dosage: 4 GRAM
     Route: 065
  5. DULOXETIN [Concomitant]
     Indication: PRODUCT USED FOR UNKNOWN INDICATION
     Dosage: 6 MILLIGRAM
     Route: 065
  6. PHENTANYL [Concomitant]
     Indication: ANALGESIC THERAPY
     Dosage: 50 MICROGRAM
     Route: 058
     Dates: start: 2010

REACTIONS (1)
  - Substance-induced psychotic disorder [Recovered/Resolved]
